FAERS Safety Report 4792367-X (Version None)
Quarter: 2005Q4

REPORT INFORMATION
  Report Type: 
  Country: None (occurrence: None)
  Receive Date: 20051010
  Receipt Date: 20050928
  Transmission Date: 20060501
  Serious: Yes (Disabling)
  Sender: FDA-Public Use
  Company Number: AU-JNJFOC-20050906454

PATIENT
  Age: 7 Decade
  Sex: Male

DRUGS (3)
  1. REMICADE [Suspect]
     Route: 042
  2. REMICADE [Suspect]
     Route: 042
  3. REMICADE [Suspect]
     Indication: RHEUMATOID ARTHRITIS
     Dosage: BEEN ON THERAPY ^FOR YEARS^
     Route: 042

REACTIONS (2)
  - DRUG INEFFECTIVE [None]
  - MOBILITY DECREASED [None]
